FAERS Safety Report 8589024-0 (Version None)
Quarter: 2012Q3

REPORT INFORMATION
  Report Type: 
  Country: None (occurrence: None)
  Receive Date: 20120731
  Receipt Date: 20120720
  Transmission Date: 20120928
  Serious: Yes (Other)
  Sender: FDA-Public Use
  Company Number: DSA_58641_2012

PATIENT

DRUGS (6)
  1. FLUOROURACIL [Suspect]
     Indication: COLORECTAL CANCER
     Dosage: (400MG/M2 INTRAVENOUS BOLUS), (2400MG/M2)
     Route: 040
  2. IRINOTECAN HCL [Suspect]
     Indication: COLORECTAL CANCER
     Dosage: (180 MG/M2 INTRAVENOUS (NOT OTHERWISE SPECIFIED)
     Route: 042
  3. DEXAMETHASONE [Concomitant]
  4. ONDANSETRON HYDROCHLORIDE [Concomitant]
  5. GRANISETRON [Concomitant]
  6. LEVOLEUCOVORIN CALCIUM [Suspect]
     Indication: COLORECTAL CANCER
     Dosage: (200 MG/M2 INTRAVENOUS (NOT OTHERWISE SPECIFIED)
     Route: 042

REACTIONS (1)
  - THROMBOCYTOPENIA [None]
